FAERS Safety Report 6965113-9 (Version None)
Quarter: 2010Q3

REPORT INFORMATION
  Report Type: 
  Country: None (occurrence: None)
  Receive Date: 20100903
  Receipt Date: 20100825
  Transmission Date: 20110219
  Serious: Yes (Hospitalization)
  Sender: FDA-Public Use
  Company Number: US-ELI_LILLY_AND_COMPANY-US201008006734

PATIENT
  Sex: Male
  Weight: 85 kg

DRUGS (12)
  1. PRASUGREL HYDROCHLORIDE [Suspect]
     Indication: ACUTE CORONARY SYNDROME
     Dosage: 10 MG, DAILY (1/D)
     Dates: start: 20100715
  2. ASPIRIN [Concomitant]
     Dosage: 325 MG, DAILY (1/D)
     Dates: start: 20100714, end: 20100803
  3. ASPIRIN [Concomitant]
     Dosage: 81 MG, DAILY (1/D)
     Dates: start: 20100803
  4. BENICAR [Concomitant]
     Indication: BLOOD PRESSURE
     Dosage: 20 MG, DAILY (1/D)
     Route: 048
  5. CARBIDOPA AND LEVODOPA [Concomitant]
     Indication: PARKINSON'S DISEASE
     Dosage: 200 MG, 4/D
     Route: 048
  6. MULTI-VITAMIN [Concomitant]
     Indication: VITAMIN SUPPLEMENTATION
     Dosage: 1 U, DAILY (1/D)
     Route: 048
  7. NAMENDA [Concomitant]
     Indication: DEMENTIA ALZHEIMER'S TYPE
     Dosage: 10 MG, 2/D
     Route: 048
  8. NITROGLYCERIN [Concomitant]
     Indication: ANGINA PECTORIS
     Dosage: 0.4 MG, AS NEEDED
     Route: 060
  9. ZOCOR [Concomitant]
     Indication: BLOOD CHOLESTEROL
     Dosage: 20 MG, DAILY (1/D)
     Route: 048
  10. SEROQUEL [Concomitant]
     Indication: BIPOLAR DISORDER
     Dosage: 12.5 MG, DAILY (1/D)
     Route: 048
  11. SYNTHROID [Concomitant]
     Indication: THYROID DISORDER
     Dosage: 0.18 MG, DAILY (1/D)
     Route: 048
  12. VITAMIN B-12 [Concomitant]
     Indication: VITAMIN SUPPLEMENTATION
     Dosage: 1 U, OTHER
     Route: 050

REACTIONS (2)
  - GASTROINTESTINAL HAEMORRHAGE [None]
  - ORTHOSTATIC HYPOTENSION [None]
